FAERS Safety Report 9007277 (Version 1)
Quarter: 2013Q1

REPORT INFORMATION
  Report Type: Spontaneous
  Country: US (occurrence: US)
  Receive Date: 20130110
  Receipt Date: 20130110
  Transmission Date: 20140127
  Serious: No
  Sender: FDA-Public Use
  Company Number: US-PFIZER INC-2013011423

PATIENT
  Sex: Female
  Weight: 56.69 kg

DRUGS (3)
  1. LIPITOR [Suspect]
     Indication: CEREBRAL ARTERY STENOSIS
     Dosage: 20 MG, DAILY
     Dates: start: 200304
  2. LEVOXYL [Suspect]
     Indication: GOITRE
     Dosage: UNK, DAILY
  3. ESTROGENS CONJUGATED [Concomitant]
     Dosage: 0.3 MG, DAILY

REACTIONS (2)
  - Drug ineffective [Unknown]
  - Thyroid disorder [Unknown]
